FAERS Safety Report 8266473 (Version 4)
Quarter: 2013Q2

REPORT INFORMATION
  Report Type: Spontaneous
  Country: US (occurrence: US)
  Receive Date: 20111129
  Receipt Date: 20130626
  Transmission Date: 20140414
  Serious: Yes (Hospitalization)
  Sender: FDA-Public Use
  Company Number: US-GLAXOSMITHKLINE-A0931864A

PATIENT
  Age: 61 Year
  Sex: Female

DRUGS (7)
  1. FLOVENT [Suspect]
     Indication: ASTHMA
     Dosage: 500MG TWICE PER DAY
     Route: 055
     Dates: start: 201104, end: 20110608
  2. FLOVENT [Suspect]
     Indication: ASTHMA
     Dosage: 2PUFF TWICE PER DAY
     Route: 055
     Dates: end: 201211
  3. HCTZ [Concomitant]
  4. CAPTOPRIL [Concomitant]
  5. LEVOTHYROXINE [Concomitant]
  6. FISH OIL [Concomitant]
  7. SINGULAIR [Concomitant]

REACTIONS (13)
  - Bronchitis chronic [Recovered/Resolved]
  - Overdose [Unknown]
  - Diarrhoea [Unknown]
  - Gastric disorder [Unknown]
  - Nervousness [Unknown]
  - Insomnia [Unknown]
  - Wheezing [Unknown]
  - Cough [Unknown]
  - Throat irritation [Unknown]
  - Pharyngeal disorder [Unknown]
  - Bronchitis [Unknown]
  - Product quality issue [Unknown]
  - Asthma [Recovered/Resolved]
